FAERS Safety Report 6899456-4 (Version None)
Quarter: 2010Q3

REPORT INFORMATION
  Report Type: 
  Country: None (occurrence: None)
  Receive Date: 20100803
  Receipt Date: 20100727
  Transmission Date: 20110219
  Serious: Yes (Other)
  Sender: FDA-Public Use
  Company Number: US-SHIRE-SPV1-2010-01344

PATIENT

DRUGS (3)
  1. INTUNIV [Suspect]
     Indication: ATTENTION DEFICIT/HYPERACTIVITY DISORDER
     Dosage: 1 MG, 1X/DAY:QD
     Route: 065
     Dates: end: 20100101
  2. INTUNIV [Suspect]
     Dosage: 2 MG, 1X/DAY:QD
     Route: 065
  3. INTUNIV [Suspect]
     Dosage: 3 MG, 1X/DAY:QD
     Route: 065
     Dates: end: 20100101

REACTIONS (1)
  - PSYCHOTIC DISORDER [None]
